FAERS Safety Report 7929028-1 (Version None)
Quarter: 2011Q4

REPORT INFORMATION
  Report Type: 
  Country: None (occurrence: None)
  Receive Date: 20111118
  Receipt Date: 20111107
  Transmission Date: 20120403
  Serious: Yes (Hospitalization)
  Sender: FDA-Public Use
  Company Number: US-ROCHE-1013467

PATIENT
  Sex: Female

DRUGS (5)
  1. HERCEPTIN [Suspect]
     Indication: BREAST CANCER
     Dosage: LOADING DOSE
     Route: 042
     Dates: start: 20050209
  2. CYCLOPHOSPHAMIDE [Suspect]
     Indication: BREAST CANCER
     Route: 042
     Dates: start: 20050209
  3. PACLITAXEL [Suspect]
     Indication: BREAST CANCER
     Route: 042
     Dates: start: 20050209
  4. DOXORUBICIN HCL [Suspect]
     Indication: BREAST CANCER
     Route: 041
     Dates: start: 20050209
  5. HERCEPTIN [Suspect]
     Dosage: MAINTAINANCE DOSE
     Route: 042
     Dates: start: 20050209

REACTIONS (3)
  - SYNCOPE [None]
  - DEHYDRATION [None]
  - DIARRHOEA [None]
